FAERS Safety Report 10093886 (Version 1)
Quarter: 2014Q2

REPORT INFORMATION
  Report Type: Spontaneous
  Country: US (occurrence: US)
  Receive Date: 20140421
  Receipt Date: 20140421
  Transmission Date: 20141212
  Serious: No
  Sender: FDA-Public Use
  Company Number: US-SANOFI-AVENTIS-2013SA085329

PATIENT
  Age: 19 Year
  Sex: Male
  Weight: 74.84 kg

DRUGS (2)
  1. ALLEGRA [Suspect]
     Indication: HYPERSENSITIVITY
     Route: 048
     Dates: start: 20130820
  2. IRON [Concomitant]
     Indication: ANAEMIA
     Route: 065
     Dates: start: 201205

REACTIONS (1)
  - Diarrhoea [Not Recovered/Not Resolved]
